FAERS Safety Report 7509890-7 (Version None)
Quarter: 2011Q2

REPORT INFORMATION
  Report Type: 
  Country: None (occurrence: None)
  Receive Date: 20110527
  Receipt Date: 20110418
  Transmission Date: 20111010
  Serious: Yes (Other)
  Sender: FDA-Public Use
  Company Number: US-BAYER-201018755NA

PATIENT
  Age: 57 Year
  Sex: Female
  Weight: 66 kg

DRUGS (38)
  1. OMNISCAN [Suspect]
     Indication: IMAGING PROCEDURE
  2. CIPRO [Concomitant]
     Dosage: 750 MG, BID X10 DAYS
  3. DEPO [Concomitant]
  4. COMBIVENT [Concomitant]
  5. MAGNEVIST [Suspect]
  6. MULTIHANCE [Suspect]
     Indication: IMAGING PROCEDURE
  7. PROTONIX [Concomitant]
     Dosage: 40 MG, QD
  8. BACTRIM DS [Concomitant]
  9. SINGULAIR [Concomitant]
  10. TIGAN [Concomitant]
  11. MAGNEVIST [Suspect]
     Indication: NUCLEAR MAGNETIC RESONANCE IMAGING
     Dosage: UNK
     Dates: start: 20040709, end: 20040709
  12. GADOLINIUM IN UNSPECIFIED DRUG [Suspect]
     Dosage: UNK
     Route: 042
     Dates: start: 20020520, end: 20020520
  13. MS CONTIN [Concomitant]
     Indication: PAIN
     Dosage: 100 MG, EVERY 12 HOURS PRN
  14. AMBIEN [Concomitant]
     Indication: PAIN
     Dosage: 10 MG, HS
  15. CELEXA [Concomitant]
     Dosage: 20 MG, QD
  16. MUCINEX [Concomitant]
  17. AUGMENTIN [Concomitant]
  18. GADOLINIUM IN UNSPECIFIED DRUG [Suspect]
     Dosage: UNK
     Dates: start: 20060524, end: 20060524
  19. ANTIVERT [Concomitant]
  20. VIBRAMYCIN [Concomitant]
     Dosage: 100 MG, UNK
  21. MORPHINE SULFATE [Concomitant]
  22. AZOPT [Concomitant]
  23. PYRIDIATE [Concomitant]
  24. OPTIMARK [Suspect]
     Indication: IMAGING PROCEDURE
  25. EFFEXOR [Concomitant]
     Dosage: 37.5 MG, BID
  26. SYMBICORT [Concomitant]
  27. PROHANCE [Suspect]
     Dosage: UNK
     Dates: start: 20061020, end: 20061020
  28. MS CONTIN [Concomitant]
     Dosage: 60 MG, QD
  29. PERCOCET [Concomitant]
     Indication: PAIN
     Dosage: 10/325 MG, QID
  30. ORAPRED [Concomitant]
  31. GADOLINIUM IN UNSPECIFIED DRUG [Suspect]
     Indication: NUCLEAR MAGNETIC RESONANCE IMAGING
     Dosage: UNK
     Dates: start: 20010420, end: 20010420
  32. PROHANCE [Suspect]
     Indication: NUCLEAR MAGNETIC RESONANCE IMAGING
     Dosage: 15 ML, UNK
     Route: 042
     Dates: start: 20030114, end: 20030114
  33. ANTIGLAUCOMA PREPARATIONS AND MIOTICS [Concomitant]
  34. XALATAN [Concomitant]
  35. OXYCONTIN [Concomitant]
  36. PHENAZOPYRIDINE HCL TAB [Concomitant]
  37. HYCODAN [Concomitant]
  38. LORCET-HD [Concomitant]
     Indication: PAIN
     Dosage: 10/650 MG, UNK

REACTIONS (20)
  - MUSCULOSKELETAL PAIN [None]
  - LICHENIFICATION [None]
  - DEFORMITY [None]
  - SKIN ATROPHY [None]
  - MUSCLE SPASMS [None]
  - GENERAL PHYSICAL HEALTH DETERIORATION [None]
  - SKIN HYPOPIGMENTATION [None]
  - PAIN IN EXTREMITY [None]
  - SKIN DISCOLOURATION [None]
  - SKIN TIGHTNESS [None]
  - SCAR [None]
  - SKIN DISORDER [None]
  - PEAU D'ORANGE [None]
  - SKIN HYPERTROPHY [None]
  - NEPHROGENIC SYSTEMIC FIBROSIS [None]
  - ARTHRALGIA [None]
  - PRURITUS [None]
  - SKIN LESION [None]
  - SKIN HYPERPIGMENTATION [None]
  - XEROSIS [None]
